FAERS Safety Report 20364352 (Version 2)
Quarter: 2022Q3

REPORT INFORMATION
  Report Type: Spontaneous
  Country: US (occurrence: US)
  Receive Date: 20220121
  Receipt Date: 20220725
  Transmission Date: 20221027
  Serious: Yes (Other)
  Sender: FDA-Public Use
  Company Number: US-009507513-2201USA004947

PATIENT
  Sex: Female

DRUGS (4)
  1. KEYTRUDA [Suspect]
     Active Substance: PEMBROLIZUMAB
  2. LENVATINIB MESYLATE [Suspect]
     Active Substance: LENVATINIB MESYLATE
     Indication: Uterine cancer
     Dosage: 10 MILLIGRAM, DAILY
     Dates: start: 20211111
  3. LENVATINIB MESYLATE [Suspect]
     Active Substance: LENVATINIB MESYLATE
     Indication: Lung neoplasm malignant
  4. LENVATINIB MESYLATE [Suspect]
     Active Substance: LENVATINIB MESYLATE
     Indication: Endometrial cancer

REACTIONS (8)
  - Myasthenia gravis [Unknown]
  - Dysphonia [Unknown]
  - Lung disorder [Unknown]
  - Cardiac disorder [Unknown]
  - Ejection fraction abnormal [Unknown]
  - Fatigue [Unknown]
  - Dyspnoea [Unknown]
  - Cough [Unknown]
